FAERS Safety Report 4323353-1 (Version None)
Quarter: 2004Q1

REPORT INFORMATION
  Report Type: 
  Country: None (occurrence: None)
  Receive Date: 20040322
  Receipt Date: 20040308
  Transmission Date: 20041129
  Serious: Yes (Death)
  Sender: FDA-Public Use
  Company Number: 03P-167-0240458-00

PATIENT
  Age: 59 Year
  Sex: Male
  Weight: 68 kg

DRUGS (6)
  1. HUMIRA [Suspect]
     Indication: RHEUMATOID ARTHRITIS
     Dosage: 40 MG, 1 IN 2 WK, SUBCUTANEOUS
     Route: 058
     Dates: start: 20030901, end: 20031101
  2. ROFECOXIB [Concomitant]
  3. ZYLEX [Concomitant]
  4. LANSOPRAZOLE [Concomitant]
  5. DALTOCOR [Concomitant]
  6. EYE DROPS [Concomitant]

REACTIONS (3)
  - CIRCULATORY COLLAPSE [None]
  - DYSPNOEA [None]
  - WHEEZING [None]
